FAERS Safety Report 20556877 (Version 2)
Quarter: 2022Q2

REPORT INFORMATION
  Report Type: Spontaneous
  Country: US (occurrence: US)
  Receive Date: 20220307
  Receipt Date: 20220412
  Transmission Date: 20220721
  Serious: Yes (Death, Other)
  Sender: FDA-Public Use
  Company Number: US-GSKCCFUS-Case-01311982_AE-76378

PATIENT
  Sex: Male

DRUGS (1)
  1. BLENREP [Suspect]
     Active Substance: BELANTAMAB MAFODOTIN-BLMF
     Indication: Plasma cell myeloma
     Dosage: UNK UNK, Z, EVERY THREE WEEKS
     Route: 042
     Dates: start: 20211101

REACTIONS (1)
  - Plasma cell myeloma [Fatal]
